FAERS Safety Report 15438685 (Version 1)
Quarter: 2018Q3

REPORT INFORMATION
  Report Type: Report from Study
  Country: ES (occurrence: ES)
  Receive Date: 20180928
  Receipt Date: 20180928
  Transmission Date: 20181010
  Serious: Yes (Hospitalization, Other)
  Sender: FDA-Public Use
  Company Number: ES-TEVA-2018-ES-959324

PATIENT
  Age: 39 Year
  Sex: Female

DRUGS (3)
  1. GABAPENTINA (2641A) [Interacting]
     Active Substance: GABAPENTIN
     Indication: SPINAL PAIN
     Route: 048
     Dates: start: 20160817, end: 20160818
  2. DIAZEPAM (730A) [Interacting]
     Active Substance: DIAZEPAM
     Indication: SPINAL PAIN
     Dosage: 5 MILLIGRAM DAILY;
     Route: 048
     Dates: start: 2015
  3. FENTANILO (1543A) [Suspect]
     Active Substance: FENTANYL
     Indication: SPINAL PAIN
     Dosage: 50 MILLIGRAM DAILY;
     Route: 062
     Dates: start: 20160817, end: 20160818

REACTIONS (2)
  - Drug interaction [Unknown]
  - Encephalopathy [Recovered/Resolved]

NARRATIVE: CASE EVENT DATE: 20160818
